FAERS Safety Report 14877385 (Version 1)
Quarter: 2018Q2

REPORT INFORMATION
  Report Type: Spontaneous
  Country: US (occurrence: US)
  Receive Date: 20180510
  Receipt Date: 20180510
  Transmission Date: 20180711
  Serious: Yes (Hospitalization)
  Sender: FDA-Public Use
  Company Number: US-ACELLA PHARMACEUTICALS, LLC-2047577

PATIENT
  Age: 42 Year
  Sex: Female

DRUGS (1)
  1. (LEVONORGESTREL AND ETHINYL ESTRADIOL TABLETS AND FERROUS BISGLYCINATE [Suspect]
     Active Substance: ETHINYL ESTRADIOL\LEVONORGESTREL
     Indication: ACNE

REACTIONS (3)
  - Transaminases increased [Recovered/Resolved]
  - Hepatomegaly [Unknown]
  - Peliosis hepatis [Unknown]
